FAERS Safety Report 8601505 (Version 3)
Quarter: 2012Q4

REPORT INFORMATION
  Report Type: 
  Country: IT (occurrence: IT)
  Receive Date: 20120606
  Receipt Date: 20121119
  Transmission Date: 20130627
  Serious: Yes (Hospitalization, Other)
  Sender: FDA-Public Use
  Company Number: IT-BRISTOL-MYERS SQUIBB COMPANY-16649444

PATIENT
  Age: 38 Year
  Sex: Female

DRUGS (1)
  1. COUMADIN TABS 5 MG [Suspect]
     Indication: DEEP VEIN THROMBOSIS
     Dates: start: 20090901, end: 20120522

REACTIONS (3)
  - Accidental overdose [Unknown]
  - Tongue haematoma [Recovered/Resolved]
  - Acute tonsillitis [Unknown]
